FAERS Safety Report 15233812 (Version 1)
Quarter: 2018Q3

REPORT INFORMATION
  Report Type: Spontaneous
  Country: BW (occurrence: BW)
  Receive Date: 20180802
  Receipt Date: 20180802
  Transmission Date: 20181010
  Serious: Yes (Hospitalization)
  Sender: FDA-Public Use
  Company Number: PHHY2018BW058217

PATIENT
  Age: 14 Year
  Sex: Male

DRUGS (5)
  1. PARACETAMOL [Suspect]
     Active Substance: ACETAMINOPHEN
     Indication: CAVERNOUS SINUS THROMBOSIS
     Dosage: 500 MG, UNK
     Route: 048
  2. CLEXANE [Suspect]
     Active Substance: ENOXAPARIN SODIUM
     Indication: CAVERNOUS SINUS THROMBOSIS
     Route: 065
  3. VANCOMYCIN [Suspect]
     Active Substance: VANCOMYCIN
     Indication: CAVERNOUS SINUS THROMBOSIS
     Dosage: 600 MG, BID
     Route: 042
  4. CEFTRIAXONE. [Suspect]
     Active Substance: CEFTRIAXONE
     Indication: CAVERNOUS SINUS THROMBOSIS
     Dosage: 1.5 G, QD
     Route: 065
  5. METRONIDAZOLE. [Suspect]
     Active Substance: METRONIDAZOLE
     Indication: CAVERNOUS SINUS THROMBOSIS
     Dosage: 500 MG, UNK
     Route: 042

REACTIONS (4)
  - Hemiplegia [Unknown]
  - Cerebrovascular accident [Unknown]
  - Aphasia [Unknown]
  - Asthenia [Unknown]
